FAERS Safety Report 8427930-8 (Version None)
Quarter: 2012Q2

REPORT INFORMATION
  Report Type: 
  Country: None (occurrence: None)
  Receive Date: 20120611
  Receipt Date: 20120608
  Transmission Date: 20120825
  Serious: No
  Sender: FDA-Public Use
  Company Number: US-PFIZER INC-2012138645

PATIENT
  Sex: Female
  Weight: 79.365 kg

DRUGS (5)
  1. CLONAZEPAM [Concomitant]
     Indication: ANXIETY
     Dosage: 0.5 MG ONE IN THE MORNING, ONE IN THE AFTERNOON AND TWO AT NIGHT
  2. EFFEXOR XR [Suspect]
     Indication: ANXIETY
     Dosage: 150 MG, DAILY
     Dates: start: 20120101, end: 20120604
  3. CLONAZEPAM [Concomitant]
     Indication: DEPRESSION
  4. WELLBUTRIN [Concomitant]
     Indication: ANXIETY
     Dosage: 200 MG, 2X/DAY
  5. WELLBUTRIN [Concomitant]
     Indication: DEPRESSION

REACTIONS (5)
  - DIZZINESS [None]
  - TREMOR [None]
  - WITHDRAWAL SYNDROME [None]
  - MYALGIA [None]
  - AGITATION [None]
